FAERS Safety Report 19415660 (Version 1)
Quarter: 2021Q2

REPORT INFORMATION
  Report Type: Spontaneous
  Country: US (occurrence: US)
  Receive Date: 20210614
  Receipt Date: 20210614
  Transmission Date: 20210717
  Serious: Yes (Hospitalization)
  Sender: FDA-Public Use
  Company Number: None

PATIENT
  Age: 67 Year
  Sex: Male

DRUGS (19)
  1. AZITHROMYCIN ANHYDROUS. [Concomitant]
     Active Substance: AZITHROMYCIN ANHYDROUS
  2. METOLAZONE. [Concomitant]
     Active Substance: METOLAZONE
  3. TAMSULOSIN [Concomitant]
     Active Substance: TAMSULOSIN
  4. MEOPROLOL [Concomitant]
  5. ASPIRIN. [Concomitant]
     Active Substance: ASPIRIN
  6. FUROSEMIDE. [Concomitant]
     Active Substance: FUROSEMIDE
  7. ANORO ELLIPT AER [Concomitant]
  8. DILTIAZEM. [Concomitant]
     Active Substance: DILTIAZEM
  9. LISINOPRIL. [Concomitant]
     Active Substance: LISINOPRIL
  10. POTASSIUM CHLORIDE. [Concomitant]
     Active Substance: POTASSIUM CHLORIDE
  11. ISOSORB MONO [Concomitant]
     Active Substance: ISOSORBIDE MONONITRATE
  12. TRELEGY ELLIPTA [Concomitant]
     Active Substance: FLUTICASONE FUROATE\UMECLIDINIUM BROMIDE\VILANTEROL TRIFENATATE
  13. AMLODIPINE [Concomitant]
     Active Substance: AMLODIPINE BESYLATE
  14. LOSARTAN. [Concomitant]
     Active Substance: LOSARTAN
  15. OMEPRAZOLE. [Concomitant]
     Active Substance: OMEPRAZOLE
  16. ZARXIO [Suspect]
     Active Substance: FILGRASTIM-SNDZ
     Indication: SQUAMOUS CELL CARCINOMA OF LUNG
     Dosage: ?          OTHER FREQUENCY:QD FOR 5 OF 21 DAY;?
     Route: 058
     Dates: start: 20210527
  17. NICOTINE TD [Concomitant]
  18. VENTOLIN [Concomitant]
     Active Substance: ALBUTEROL SULFATE
  19. TRAMADOL. [Concomitant]
     Active Substance: TRAMADOL

REACTIONS (1)
  - Infection [None]

NARRATIVE: CASE EVENT DATE: 20210603
